FAERS Safety Report 12376661 (Version 2)
Quarter: 2016Q2

REPORT INFORMATION
  Report Type: Report from Study
  Country: US (occurrence: US)
  Receive Date: 20160517
  Receipt Date: 20160517
  Transmission Date: 20160815
  Serious: No
  Sender: FDA-Public Use
  Company Number: US-MALLINCKRODT-T201502707

PATIENT
  Age: 60 Year
  Sex: Female

DRUGS (2)
  1. REPOSITORY CORTICOTROPIN INJECTION [Suspect]
     Active Substance: CORTICOTROPIN
     Indication: POLYMYOSITIS
     Dosage: 40 UNITS/2X A WEEK
     Route: 058
     Dates: start: 20130401
  2. REPOSITORY CORTICOTROPIN INJECTION [Suspect]
     Active Substance: CORTICOTROPIN
     Dosage: 60 UNITS TWICE WEEKLY (THUR + SUN)
     Route: 058
     Dates: start: 20150127

REACTIONS (16)
  - Furuncle [Not Recovered/Not Resolved]
  - Contusion [Unknown]
  - Eye infection [Recovered/Resolved]
  - Myalgia [Unknown]
  - Joint effusion [Unknown]
  - Injection site bruising [Unknown]
  - Fall [Unknown]
  - Bursitis [Not Recovered/Not Resolved]
  - Back pain [Unknown]
  - Headache [Unknown]
  - Blood creatine phosphokinase increased [Not Recovered/Not Resolved]
  - Dizziness [Recovered/Resolved]
  - Swelling [Not Recovered/Not Resolved]
  - Injection site pain [Unknown]
  - Therapeutic response unexpected [Unknown]
  - Nausea [Recovered/Resolved]

NARRATIVE: CASE EVENT DATE: 201505
